FAERS Safety Report 22225639 (Version 2)
Quarter: 2023Q2

REPORT INFORMATION
  Report Type: Spontaneous
  Country: US (occurrence: US)
  Receive Date: 20230418
  Receipt Date: 20230515
  Transmission Date: 20230721
  Serious: No
  Sender: FDA-Public Use
  Company Number: US-BAUSCHBL-2023BNL003132

PATIENT
  Age: 75 Year
  Sex: Female
  Weight: 40.86 kg

DRUGS (4)
  1. VYZULTA [Suspect]
     Active Substance: LATANOPROSTENE BUNOD
     Indication: Intraocular pressure test abnormal
     Dosage: BED TIME
     Route: 047
     Dates: start: 2022
  2. ERGOCALCIFEROL [Concomitant]
     Active Substance: ERGOCALCIFEROL
     Indication: Product used for unknown indication
     Dosage: IT^S BEEN YEAR^S
  3. CALCIUM [Concomitant]
     Active Substance: CALCIUM
     Indication: Product used for unknown indication
     Dosage: IT^S BEEN YEAR^S
  4. OCUVITE [Concomitant]
     Active Substance: VITAMINS
     Indication: Eye disorder
     Dosage: IT^S BEEN 4 YEARS

REACTIONS (10)
  - Nervousness [Unknown]
  - Poor quality sleep [Unknown]
  - Pain in extremity [Unknown]
  - Feeling jittery [Unknown]
  - Agitation [Unknown]
  - Fatigue [Unknown]
  - Eyelids pruritus [Unknown]
  - Eyelid pain [Unknown]
  - Erythema of eyelid [Unknown]
  - Product after taste [Unknown]
